FAERS Safety Report 9318509 (Version 1)
Quarter: 2013Q2

REPORT INFORMATION
  Report Type: Spontaneous
  Country: US (occurrence: US)
  Receive Date: 20130530
  Receipt Date: 20130530
  Transmission Date: 20140414
  Serious: No
  Sender: FDA-Public Use
  Company Number: US-NOVEN-12US005698

PATIENT
  Age: 13 Year
  Sex: Male
  Weight: 53.52 kg

DRUGS (3)
  1. DAYTRANA [Suspect]
     Indication: ATTENTION DEFICIT/HYPERACTIVITY DISORDER
     Dosage: 1/4 PATCH
     Route: 062
     Dates: start: 20121115, end: 20121115
  2. DIMETAPP COLD + ALLERGY [Concomitant]
     Indication: HYPERSENSITIVITY
     Route: 048
  3. EPIPEN [Concomitant]
     Indication: HYPERSENSITIVITY
     Route: 058

REACTIONS (4)
  - Disturbance in attention [Recovered/Resolved]
  - Drug prescribing error [Recovered/Resolved]
  - Drug ineffective [Recovered/Resolved]
  - Wrong technique in drug usage process [Not Recovered/Not Resolved]
